FAERS Safety Report 19009054 (Version 2)
Quarter: 2021Q1

REPORT INFORMATION
  Report Type: Spontaneous
  Country: ZA (occurrence: ZA)
  Receive Date: 20210316
  Receipt Date: 20210316
  Transmission Date: 20210420
  Serious: Yes (Other)
  Sender: FDA-Public Use
  Company Number: ZA-CIPLA LTD.-2021ZA01859

PATIENT

DRUGS (5)
  1. LAMIVUDINE. [Suspect]
     Active Substance: LAMIVUDINE
     Indication: HIV INFECTION
     Dosage: UNK, FIRST LINE THERAPY
     Route: 065
     Dates: start: 201011
  2. LAMIVUDINE. [Suspect]
     Active Substance: LAMIVUDINE
     Dosage: UNK, SECOND LINE THERAPY
     Route: 065
  3. NEVIRAPINE. [Suspect]
     Active Substance: NEVIRAPINE
     Indication: HIV INFECTION
     Dosage: UNK
     Route: 065
     Dates: start: 201011
  4. TENOFOVIR [Suspect]
     Active Substance: TENOFOVIR
     Indication: HIV INFECTION
     Dosage: UNK, FIRST LINE THERAPY
     Route: 065
     Dates: start: 201011
  5. TENOFOVIR [Suspect]
     Active Substance: TENOFOVIR
     Dosage: UNK, SECOND LINE THERAPY
     Route: 065

REACTIONS (2)
  - Treatment failure [Unknown]
  - Treatment noncompliance [Unknown]
